FAERS Safety Report 12630777 (Version 1)
Quarter: 2016Q3

REPORT INFORMATION
  Report Type: Spontaneous
  Country: US (occurrence: US)
  Receive Date: 20160808
  Receipt Date: 20160808
  Transmission Date: 20161109
  Serious: No
  Sender: FDA-Public Use
  Company Number: US-PFIZER INC-2016358930

PATIENT
  Age: 17 Year
  Sex: Female
  Weight: 52.16 kg

DRUGS (1)
  1. ADVIL [Suspect]
     Active Substance: IBUPROFEN
     Indication: PAIN
     Dosage: UNK
     Dates: start: 20160721

REACTIONS (4)
  - Somnolence [Recovering/Resolving]
  - Malaise [Recovering/Resolving]
  - Vomiting [Unknown]
  - Intentional overdose [Unknown]

NARRATIVE: CASE EVENT DATE: 20160721
